FAERS Safety Report 4521332-2 (Version None)
Quarter: 2004Q4

REPORT INFORMATION
  Report Type: 
  Country: None (occurrence: None)
  Receive Date: 20041208
  Receipt Date: 20041118
  Transmission Date: 20050328
  Serious: Yes (Death, Hospitalization)
  Sender: FDA-Public Use
  Company Number: PHHO2004ES16369

PATIENT
  Age: 25 Year
  Sex: Male

DRUGS (1)
  1. STI [Suspect]
     Indication: EWING'S SARCOMA
     Dosage: 400 MG, QD
     Route: 048
     Dates: start: 20041109, end: 20041116

REACTIONS (5)
  - ASPIRATION PLEURAL CAVITY [None]
  - ASTHENIA [None]
  - DYSPNOEA [None]
  - NAUSEA [None]
  - PLEURAL EFFUSION [None]
